FAERS Safety Report 10757905 (Version 1)
Quarter: 2015Q1

REPORT INFORMATION
  Report Type: Spontaneous
  Country: TR (occurrence: TR)
  Receive Date: 20150203
  Receipt Date: 20150203
  Transmission Date: 20150721
  Serious: Yes (Other)
  Sender: FDA-Public Use
  Company Number: TR-MYLANLABS-2015M1002642

PATIENT

DRUGS (1)
  1. LEVOTHYROXINE SODIUM. [Suspect]
     Active Substance: LEVOTHYROXINE SODIUM
     Indication: CONGENITAL HYPOTHYROIDISM
     Route: 065

REACTIONS (8)
  - Uterine haemorrhage [Unknown]
  - Pituitary haemorrhage [Unknown]
  - Vomiting [Unknown]
  - Endometrial hyperplasia [Unknown]
  - Palpitations [Unknown]
  - Headache [Unknown]
  - Decreased appetite [Unknown]
  - Sleep disorder [Unknown]
